FAERS Safety Report 6320668-2 (Version None)
Quarter: 2009Q3

REPORT INFORMATION
  Report Type: 
  Country: None (occurrence: None)
  Receive Date: 20090822
  Receipt Date: 20081125
  Transmission Date: 20100115
  Serious: No
  Sender: FDA-Public Use
  Company Number: US-ABBOTT-08P-163-0489869-00

PATIENT
  Sex: Female

DRUGS (23)
  1. NIASPAN [Suspect]
     Indication: BLOOD CHOLESTEROL INCREASED
     Route: 048
     Dates: start: 20081111
  2. ASPIRIN [Concomitant]
     Indication: DRUG USE FOR UNKNOWN INDICATION
  3. GLAUCOMA MEDICATION [Concomitant]
     Indication: DRUG USE FOR UNKNOWN INDICATION
  4. LORAZEPAM [Concomitant]
     Indication: ANXIETY
  5. NATTO JAPANESE FOOD PRODUCT [Concomitant]
     Indication: DRUG USE FOR UNKNOWN INDICATION
  6. MULTI-VITAMIN [Concomitant]
     Indication: DRUG USE FOR UNKNOWN INDICATION
  7. LISENE [Concomitant]
     Indication: DRUG USE FOR UNKNOWN INDICATION
  8. FISH OIL [Concomitant]
     Indication: DRUG USE FOR UNKNOWN INDICATION
  9. CYANOCOBALAMIN-TANNIN COMPLEX [Concomitant]
     Indication: DRUG USE FOR UNKNOWN INDICATION
  10. GREEN TEA [Concomitant]
     Indication: DRUG USE FOR UNKNOWN INDICATION
  11. ALLIUM SATIVUM [Concomitant]
     Indication: DRUG USE FOR UNKNOWN INDICATION
  12. UBIDECARENONE [Concomitant]
     Indication: DRUG USE FOR UNKNOWN INDICATION
  13. TOCOPHEROL CONCENTRATE CAP [Concomitant]
     Indication: DRUG USE FOR UNKNOWN INDICATION
  14. TUMERIC [Concomitant]
     Indication: DRUG USE FOR UNKNOWN INDICATION
  15. HAWTHORN BERRY [Concomitant]
     Indication: DRUG USE FOR UNKNOWN INDICATION
  16. LINUM USITATISSIMUM SEED OIL [Concomitant]
     Indication: DRUG USE FOR UNKNOWN INDICATION
  17. ERGOCALCIFEROL [Concomitant]
     Indication: DRUG USE FOR UNKNOWN INDICATION
  18. MACROCYSTIS PYRIFERA [Concomitant]
     Indication: DRUG USE FOR UNKNOWN INDICATION
  19. WHOLE GRAPE SEED EXTRACT [Concomitant]
     Indication: DRUG USE FOR UNKNOWN INDICATION
  20. PAUMAGRANIT [Concomitant]
     Indication: DRUG USE FOR UNKNOWN INDICATION
  21. BLUE BERRY EXTRACT WITH CHOCOLATE [Concomitant]
     Indication: DRUG USE FOR UNKNOWN INDICATION
  22. FERROUS GLYCINE SULFATE [Concomitant]
     Indication: DRUG USE FOR UNKNOWN INDICATION
  23. CALCIUM/MAGNISIUM/ZINC COMBO [Concomitant]
     Indication: DRUG USE FOR UNKNOWN INDICATION

REACTIONS (3)
  - DIZZINESS [None]
  - MYALGIA [None]
  - TENDERNESS [None]
